FAERS Safety Report 12732510 (Version 1)
Quarter: 2016Q3

REPORT INFORMATION
  Report Type: Spontaneous
  Country: US (occurrence: US)
  Receive Date: 20160912
  Receipt Date: 20160912
  Transmission Date: 20161109
  Serious: Yes (Disabling)
  Sender: FDA-Public Use
  Company Number: None

PATIENT
  Age: 83 Year
  Sex: Female
  Weight: 53.52 kg

DRUGS (9)
  1. GARLIC. [Concomitant]
     Active Substance: GARLIC
  2. PROLIA [Suspect]
     Active Substance: DENOSUMAB
     Indication: OSTEOPOROSIS
     Dosage: ONE INJECTION OF 15 TO 20 MG (APPROX) ONE TIME ONLY INJECTION IN RIGHT ARM
     Dates: start: 20160725, end: 20160725
  3. VITAMIN D [Concomitant]
     Active Substance: CHOLECALCIFEROL
  4. MULTI-VITAMIN [Concomitant]
     Active Substance: .ALPHA.-TOCOPHEROL ACETATE, DL-\ASCORBIC ACID\CYANOCOBALAMIN\FLUORIDE ION\FOLIC ACID\NIACIN\PYRIDOXINE\RIBOFLAVIN\THIAMINE\VITAMIN A\VITAMIN D
  5. VITAMIN C [Concomitant]
     Active Substance: ASCORBIC ACID
  6. PROBIOTIC [Concomitant]
     Active Substance: PROBIOTICS NOS
  7. MAGNESIUM [Concomitant]
     Active Substance: MAGNESIUM
  8. PREDNISONE. [Concomitant]
     Active Substance: PREDNISONE
  9. CALCIUM [Concomitant]
     Active Substance: CALCIUM

REACTIONS (4)
  - Back pain [None]
  - Groin pain [None]
  - Arthralgia [None]
  - Gait disturbance [None]
